FAERS Safety Report 15214931 (Version 1)
Quarter: 2018Q3

REPORT INFORMATION
  Report Type: Spontaneous
  Country: IN (occurrence: IN)
  Receive Date: 20180730
  Receipt Date: 20180730
  Transmission Date: 20181010
  Serious: Yes (Hospitalization, Other)
  Sender: FDA-Public Use
  Company Number: IN-SA-2018SA198932

PATIENT
  Age: 19 Year
  Sex: Male
  Weight: 55 kg

DRUGS (4)
  1. ISONIAZID. [Suspect]
     Active Substance: ISONIAZID
     Indication: INFECTIOUS PLEURAL EFFUSION
  2. RIFAMPICIN [Suspect]
     Active Substance: RIFAMPIN
     Indication: TUBERCULOSIS
     Dosage: 600 MG, QD
     Route: 065
  3. RIFAMPICIN [Suspect]
     Active Substance: RIFAMPIN
     Indication: INFECTIOUS PLEURAL EFFUSION
  4. ISONIAZID. [Suspect]
     Active Substance: ISONIAZID
     Indication: TUBERCULOSIS
     Dosage: 300 MG, QD
     Route: 065

REACTIONS (11)
  - Agitation [Recovering/Resolving]
  - Abnormal behaviour [Recovering/Resolving]
  - Somnolence [Recovering/Resolving]
  - Disorientation [Recovering/Resolving]
  - Bradyphrenia [Recovering/Resolving]
  - Dehydration [Recovering/Resolving]
  - Drug-induced liver injury [Recovering/Resolving]
  - Yellow skin [Recovering/Resolving]
  - Hepatic encephalopathy [Recovering/Resolving]
  - Vomiting [Recovering/Resolving]
  - Jaundice [Recovering/Resolving]
